FAERS Safety Report 8464548-5 (Version None)
Quarter: 2012Q2

REPORT INFORMATION
  Report Type: 
  Country: None (occurrence: None)
  Receive Date: 20120620
  Receipt Date: 20120620
  Transmission Date: 20120825
  Serious: Yes (Hospitalization)
  Sender: FDA-Public Use
  Company Number: None

PATIENT
  Age: 71 Year
  Sex: Male

DRUGS (16)
  1. INSULIN GLARGINE [Concomitant]
  2. INSULIN ASPART [Concomitant]
  3. PERCOCET [Concomitant]
  4. REVLIMID [Suspect]
     Indication: MULTIPLE MYELOMA
     Dosage: 5 MG QD X2D, OFF X1D BY MOUTH
     Route: 048
     Dates: start: 20091101
  5. LEVOTHYROXINE [Concomitant]
  6. POTASSIUM ACETATE [Concomitant]
  7. FENTANYL CITRATE [Concomitant]
  8. CHLORPROMAZINE HCL [Concomitant]
  9. METHYLPREDNISOLONE [Concomitant]
  10. DEXAMETHASONE [Concomitant]
  11. TERAZOSIN HCL [Concomitant]
  12. DICLOFENAC SODIUM [Concomitant]
  13. MECLIZINE [Concomitant]
  14. REVLIMID [Suspect]
  15. ALENDRONATE SODIUM [Concomitant]
  16. ERGOCALCIFEROL [Concomitant]

REACTIONS (3)
  - DEEP VEIN THROMBOSIS [None]
  - NEUROPATHY PERIPHERAL [None]
  - THROMBOCYTOPENIA [None]
